APPROVED DRUG PRODUCT: ESTRADIOL
Active Ingredient: ESTRADIOL
Strength: 0.014MG/24HR
Dosage Form/Route: SYSTEM;TRANSDERMAL
Application: A204379 | Product #001 | TE Code: AB
Applicant: ZYDUS PHARMACEUTICALS USA INC
Approved: Apr 17, 2023 | RLD: No | RS: No | Type: RX